FAERS Safety Report 16146416 (Version 2)
Quarter: 2019Q2

REPORT INFORMATION
  Report Type: Spontaneous
  Country: UA (occurrence: UA)
  Receive Date: 20190402
  Receipt Date: 20190406
  Transmission Date: 20190711
  Serious: Yes (Other)
  Sender: FDA-Public Use
  Company Number: UA-009507513-1903UKR013169

PATIENT
  Age: 2 Year
  Sex: Female

DRUGS (1)
  1. NASONEX [Suspect]
     Active Substance: MOMETASONE FUROATE
     Indication: DYSPNOEA
     Dosage: 100 MICROGRAM, ONCE PER DAY (QD)
     Route: 045
     Dates: start: 201902, end: 201902

REACTIONS (3)
  - Adenoiditis [Not Recovered/Not Resolved]
  - Rhinorrhoea [Recovered/Resolved]
  - Product use in unapproved indication [Unknown]

NARRATIVE: CASE EVENT DATE: 2019
